FAERS Safety Report 8490866-0 (Version None)
Quarter: 2012Q2

REPORT INFORMATION
  Report Type: 
  Country: None (occurrence: None)
  Receive Date: 20120629
  Receipt Date: 20120629
  Transmission Date: 20120825
  Serious: No
  Sender: FDA-Public Use
  Company Number: None

PATIENT
  Age: 71 Year
  Sex: Male
  Weight: 102.0593 kg

DRUGS (1)
  1. OMEPRAZOLE [Suspect]
     Indication: GASTROOESOPHAGEAL REFLUX DISEASE
     Dosage: 20 MG 2 DAILY  JULY 2011 FOREVER
     Dates: start: 20110101

REACTIONS (7)
  - FEELING HOT [None]
  - EMOTIONAL DISTRESS [None]
  - BALANCE DISORDER [None]
  - DIZZINESS [None]
  - FALL [None]
  - NERVOUSNESS [None]
  - CHEST DISCOMFORT [None]
